FAERS Safety Report 5960446-7 (Version None)
Quarter: 2008Q4

REPORT INFORMATION
  Report Type: 
  Country: None (occurrence: None)
  Receive Date: 20081120
  Receipt Date: 20081119
  Transmission Date: 20090506
  Serious: Yes (Life-Threatening)
  Sender: FDA-Public Use
  Company Number: FR-B.I. PHARMACEUTICALS,INC./RIDGEFIELD-2008-FF-00739FF

PATIENT
  Sex: Male
  Weight: 90 kg

DRUGS (4)
  1. SPIRIVA [Suspect]
     Indication: CHRONIC OBSTRUCTIVE PULMONARY DISEASE
     Dosage: 36MCG
     Route: 055
     Dates: start: 20080506, end: 20080510
  2. BETA-2 MIMETIC DRUG [Concomitant]
  3. CORTICOID [Concomitant]
  4. DIURETIC [Concomitant]

REACTIONS (2)
  - CARDIAC FAILURE [None]
  - OVERDOSE [None]
